FAERS Safety Report 13254465 (Version 4)
Quarter: 2019Q3

REPORT INFORMATION
  Report Type: Other
  Country: CA (occurrence: CA)
  Receive Date: 20170221
  Receipt Date: 20190820
  Transmission Date: 20191004
  Serious: Yes (Hospitalization, Disabling)
  Sender: FDA-Public Use
  Company Number: CA-APOTEX-2017AP006788

PATIENT
  Age: 41 Year
  Sex: Male
  Weight: 90 kg

DRUGS (33)
  1. LEFLUNOMIDE. [Suspect]
     Active Substance: LEFLUNOMIDE
     Indication: PRODUCT USED FOR UNKNOWN INDICATION
     Dosage: UNK
     Route: 048
  2. ABATACEPT [Suspect]
     Active Substance: ABATACEPT
     Indication: PSORIATIC ARTHROPATHY
     Route: 058
  3. INFLIXIMAB [Suspect]
     Active Substance: INFLIXIMAB
     Indication: PSORIATIC ARTHROPATHY
     Route: 065
  4. SULFASALAZINE. [Suspect]
     Active Substance: SULFASALAZINE
     Indication: PRODUCT USED FOR UNKNOWN INDICATION
     Route: 065
  5. ETANERCEPT [Suspect]
     Active Substance: ETANERCEPT
     Indication: PSORIATIC ARTHROPATHY
  6. OXYCODONE HYDROCHLORIDE. [Concomitant]
     Active Substance: OXYCODONE HYDROCHLORIDE
     Indication: PRODUCT USED FOR UNKNOWN INDICATION
     Dosage: 40 MG, UNK
     Route: 065
  7. FOLIC ACID. [Concomitant]
     Active Substance: FOLIC ACID
     Indication: PRODUCT USED FOR UNKNOWN INDICATION
     Route: 065
  8. IBUPROFEN. [Suspect]
     Active Substance: IBUPROFEN
     Indication: PRODUCT USED FOR UNKNOWN INDICATION
     Dosage: 600 MG, UNK
     Route: 048
  9. OTEZLA [Suspect]
     Active Substance: APREMILAST
     Indication: RHEUMATOID ARTHRITIS
     Dosage: 30 MG, BID
     Route: 048
  10. OTEZLA [Suspect]
     Active Substance: APREMILAST
     Indication: PSORIASIS
  11. SIMPONI [Suspect]
     Active Substance: GOLIMUMAB
     Indication: PSORIATIC ARTHROPATHY
     Dosage: UNK
     Route: 058
  12. NITRAZEPAM [Concomitant]
     Active Substance: NITRAZEPAM
     Indication: PRODUCT USED FOR UNKNOWN INDICATION
     Dosage: 5 MG, UNK
     Route: 065
  13. COLCHICINE. [Concomitant]
     Active Substance: COLCHICINE
     Indication: PRODUCT USED FOR UNKNOWN INDICATION
     Dosage: .6 MG, UNK
     Route: 048
  14. ADALIMUMAB [Suspect]
     Active Substance: ADALIMUMAB
     Indication: PSORIATIC ARTHROPATHY
     Route: 058
  15. CERTOLIZUMAB PEGOL [Suspect]
     Active Substance: CERTOLIZUMAB PEGOL
     Indication: PSORIATIC ARTHROPATHY
     Route: 058
  16. ULORIC [Concomitant]
     Active Substance: FEBUXOSTAT
     Dosage: UNK
     Route: 065
  17. OXYCODONE HYDROCHLORIDE. [Concomitant]
     Active Substance: OXYCODONE HYDROCHLORIDE
     Dosage: 10 MG, UNK
     Route: 065
  18. METHOTREXATE SODIUM. [Concomitant]
     Active Substance: METHOTREXATE SODIUM
     Dosage: UNK
     Route: 065
  19. GRAVOL [Concomitant]
     Active Substance: DIMENHYDRINATE
     Indication: PRODUCT USED FOR UNKNOWN INDICATION
     Route: 065
  20. COLCHICINE. [Concomitant]
     Active Substance: COLCHICINE
     Dosage: UNK
     Route: 065
  21. ETANERCEPT [Suspect]
     Active Substance: ETANERCEPT
     Indication: RHEUMATOID ARTHRITIS
     Route: 058
  22. STELARA [Suspect]
     Active Substance: USTEKINUMAB
     Indication: PSORIATIC ARTHROPATHY
     Dosage: UNK
     Route: 058
  23. ULORIC [Concomitant]
     Active Substance: FEBUXOSTAT
     Indication: PRODUCT USED FOR UNKNOWN INDICATION
     Dosage: 80 MG, BID
     Route: 048
  24. OXYCODONE HYDROCHLORIDE. [Concomitant]
     Active Substance: OXYCODONE HYDROCHLORIDE
     Dosage: UNK
     Route: 065
  25. CYCLOSPORINE. [Suspect]
     Active Substance: CYCLOSPORINE
     Indication: PRODUCT USED FOR UNKNOWN INDICATION
     Dosage: UNK
     Route: 065
  26. GOLIMUMAB [Suspect]
     Active Substance: GOLIMUMAB
     Indication: PSORIATIC ARTHROPATHY
     Route: 058
  27. METHOTREXATE SODIUM. [Concomitant]
     Active Substance: METHOTREXATE SODIUM
     Indication: PRODUCT USED FOR UNKNOWN INDICATION
     Dosage: 4 DF, Q.WK.
     Route: 048
  28. METHOTREXATE. [Suspect]
     Active Substance: METHOTREXATE
     Indication: PRODUCT USED FOR UNKNOWN INDICATION
     Dosage: UNK
     Route: 065
  29. CIMZIA [Suspect]
     Active Substance: CERTOLIZUMAB PEGOL
     Indication: PSORIATIC ARTHROPATHY
     Dosage: UNK
     Route: 058
  30. USTEKINUMAB [Suspect]
     Active Substance: USTEKINUMAB
     Indication: PSORIATIC ARTHROPATHY
     Route: 058
  31. BENADRYL [Concomitant]
     Active Substance: DIPHENHYDRAMINE HYDROCHLORIDE
     Indication: PRODUCT USED FOR UNKNOWN INDICATION
     Route: 065
  32. OTEZLA [Suspect]
     Active Substance: APREMILAST
     Indication: PSORIATIC ARTHROPATHY
  33. DEXILANT [Concomitant]
     Active Substance: DEXLANSOPRAZOLE
     Indication: PRODUCT USED FOR UNKNOWN INDICATION
     Route: 065

REACTIONS (12)
  - Therapy non-responder [Unknown]
  - Aspartate aminotransferase increased [Unknown]
  - Alanine aminotransferase increased [Unknown]
  - C-reactive protein abnormal [Unknown]
  - Synovitis [Unknown]
  - Tenosynovitis [Unknown]
  - Headache [Unknown]
  - Treatment failure [Unknown]
  - Loss of personal independence in daily activities [Unknown]
  - Enthesopathy [Unknown]
  - Nausea [Unknown]
  - Drug hypersensitivity [Unknown]
